FAERS Safety Report 23478905 (Version 1)
Quarter: 2024Q1

REPORT INFORMATION
  Report Type: Report from Study
  Country: US (occurrence: US)
  Receive Date: 20240205
  Receipt Date: 20240205
  Transmission Date: 20240410
  Serious: No
  Sender: FDA-Public Use
  Company Number: US-EXELIXIS-CABO-23068397

PATIENT
  Sex: Male

DRUGS (8)
  1. CABOMETYX [Suspect]
     Active Substance: CABOZANTINIB S-MALATE
     Indication: Renal cancer
     Dosage: 40 MG, QD
     Route: 048
     Dates: start: 20230908
  2. XARELTO [Suspect]
     Active Substance: RIVAROXABAN
     Indication: Anticoagulant therapy
     Dosage: UNK
  3. IRON [Concomitant]
     Active Substance: IRON
  4. FINASTERIDE [Concomitant]
     Active Substance: FINASTERIDE
  5. FLUVIRIN NOS [Concomitant]
     Active Substance: INFLUENZA VIRUS VACCINE
  6. LISINOPRIL [Concomitant]
     Active Substance: LISINOPRIL
  7. PNEUMOVAX 23 [Concomitant]
     Active Substance: PNEUMOCOCCAL VACCINE, POLYVALENT 23
  8. TAMSULOSIN [Concomitant]
     Active Substance: TAMSULOSIN

REACTIONS (10)
  - Hair colour changes [Unknown]
  - Nausea [Recovered/Resolved]
  - Adrenal mass [Unknown]
  - Testicular mass [Unknown]
  - Mass [Unknown]
  - Chest pain [Unknown]
  - Flatulence [Unknown]
  - Eructation [Unknown]
  - Prostatomegaly [Unknown]
  - Increased tendency to bruise [Unknown]
